FAERS Safety Report 5126203-9 (Version None)
Quarter: 2006Q3

REPORT INFORMATION
  Report Type: 
  Country: None (occurrence: None)
  Receive Date: 20060824
  Receipt Date: 20060501
  Transmission Date: 20061208
  Serious: Yes (Hospitalization)
  Sender: FDA-Public Use
  Company Number: WAES0605USA00378

PATIENT
  Age: 58 Year
  Sex: Female

DRUGS (5)
  1. VYTORIN [Suspect]
     Indication: BLOOD CHOLESTEROL INCREASED
     Dosage: PO
     Route: 048
  2. ATIVAN [Concomitant]
  3. LEXAPRO [Concomitant]
  4. PRINIVIL [Concomitant]
  5. METOPROLOL SUCCINATE [Concomitant]

REACTIONS (1)
  - HEPATITIS [None]
